FAERS Safety Report 5878368-9 (Version None)
Quarter: 2008Q3

REPORT INFORMATION
  Report Type: 
  Country: None (occurrence: None)
  Receive Date: 20080911
  Receipt Date: 20080904
  Transmission Date: 20090109
  Serious: Yes (Hospitalization)
  Sender: FDA-Public Use
  Company Number: FR-B.I. PHARMACEUTICALS,INC./RIDGEFIELD-2008-BP-13909YA

PATIENT
  Age: 56 Year
  Sex: Male

DRUGS (4)
  1. TAMSULOSIN HCL [Suspect]
     Indication: BENIGN PROSTATIC HYPERPLASIA
     Route: 048
  2. ASPIRIN [Concomitant]
     Indication: ANGINA UNSTABLE
  3. TENORMIN [Concomitant]
     Indication: ANGINA UNSTABLE
  4. TAHOR [Concomitant]
     Indication: ANGINA UNSTABLE

REACTIONS (5)
  - ANGINA PECTORIS [None]
  - DIZZINESS [None]
  - MUSCULOSKELETAL CHEST PAIN [None]
  - ORTHOSTATIC HYPOTENSION [None]
  - SWEAT GLAND DISORDER [None]
